FAERS Safety Report 8309137 (Version 2)
Quarter: 2013Q1

REPORT INFORMATION
  Report Type: Report from Study
  Country: BR (occurrence: BR)
  Receive Date: 20111222
  Receipt Date: 20130315
  Transmission Date: 20140127
  Serious: Yes (Hospitalization, Other)
  Sender: FDA-Public Use
  Company Number: BR-ROCHE-748317

PATIENT
  Sex: Female
  Weight: 60 kg

DRUGS (11)
  1. RITUXIMAB [Suspect]
     Indication: RHEUMATOID ARTHRITIS
     Dosage: INDICATION:LUPUS,ROUTE:ENDOVENOUS,FORM:INFUSION,DOSE: 500 MG/50 ML,FREQUENCY:1000 MG/INFUSION
     Route: 042
     Dates: start: 20091231, end: 20100122
  2. PARACETAMOL/TRAMADOL HYDROCHLORIDE [Concomitant]
  3. LYRICA [Concomitant]
     Route: 065
  4. HYDROXYCHLOROQUINE [Concomitant]
     Dosage: DRUG: REUQUINOL
     Route: 065
  5. ULTRACET [Concomitant]
     Dosage: DOSE: 37.5-325 MG
     Route: 065
  6. AMYTRIL [Concomitant]
     Route: 065
  7. FOLIC ACID [Concomitant]
     Route: 065
  8. CALCORT [Concomitant]
     Route: 065
  9. COMBIRON FOLIC [Concomitant]
  10. METICORTEN [Concomitant]
     Indication: PREMEDICATION
     Route: 065
  11. METHOTREXATE [Concomitant]
     Route: 065

REACTIONS (5)
  - Cervical dysplasia [Not Recovered/Not Resolved]
  - Ill-defined disorder [Not Recovered/Not Resolved]
  - Myalgia [Unknown]
  - Haemolytic anaemia [Not Recovered/Not Resolved]
  - Uterine neoplasm [Unknown]
